FAERS Safety Report 18732182 (Version 3)
Quarter: 2021Q1

REPORT INFORMATION
  Report Type: Spontaneous
  Country: US (occurrence: US)
  Receive Date: 20210112
  Receipt Date: 20210314
  Transmission Date: 20210419
  Serious: Yes (Hospitalization)
  Sender: FDA-Public Use
  Company Number: US-TEVA-2020-US-1865163

PATIENT
  Age: 68 Year
  Sex: Male

DRUGS (5)
  1. BACLOFEN. [Suspect]
     Active Substance: BACLOFEN
     Dosage: 60 MILLIGRAM DAILY; 20MG TID AT HOME
     Route: 065
  2. BACLOFEN. [Suspect]
     Active Substance: BACLOFEN
     Indication: PRODUCT USED FOR UNKNOWN INDICATION
     Dosage: 160 MILLIGRAM DAILY; AT HOSPITAL
     Route: 065
  3. DIAZEPAM. [Suspect]
     Active Substance: DIAZEPAM
     Indication: DRUG THERAPY
     Dosage: ADMINISTERED DUE TO CONCERN FOR BENZODIAZEPINE WITHDRAWAL AS IT WAS MENTIONED AS HIS ONGOING HOME...
     Route: 065
  4. OXYBUTYNIN. [Suspect]
     Active Substance: OXYBUTYNIN CHLORIDE
     Indication: PRODUCT USED FOR UNKNOWN INDICATION
     Dosage: STARTED ONE DAY PRIOR TO THE SYMPTOMS ONSET AT HOSPITAL
     Route: 065
  5. OXYBUTYNIN. [Suspect]
     Active Substance: OXYBUTYNIN CHLORIDE
     Dosage: 15 MILLIGRAM DAILY; THREE TIMES A DAY AT HOME
     Route: 065

REACTIONS (2)
  - Delirium [Recovered/Resolved]
  - Medication error [Unknown]
